FAERS Safety Report 5605253-X (Version None)
Quarter: 2008Q1

REPORT INFORMATION
  Report Type: 
  Country: None (occurrence: None)
  Receive Date: 20080129
  Receipt Date: 20080116
  Transmission Date: 20080703
  Serious: Yes (Other)
  Sender: FDA-Public Use
  Company Number: US-PFIZER INC-2008005432

PATIENT
  Sex: Female

DRUGS (15)
  1. LYRICA [Suspect]
  2. POTASSIUM CHLORIDE [Concomitant]
  3. NORVASC [Concomitant]
  4. ENALAPRIL [Concomitant]
  5. TRICOR [Concomitant]
  6. LEVOTHYROXINE SODIUM [Concomitant]
  7. CARBAMAZEPINE [Concomitant]
  8. CYANOCOBALAMIN [Concomitant]
  9. RHINOCORT [Concomitant]
  10. CYCLOSPORINE [Concomitant]
  11. NEFAZODONE HCL [Concomitant]
  12. XANAX [Concomitant]
  13. OMEGA-3 MARINE TRIGLYCERIDES [Concomitant]
  14. VITAMINS [Concomitant]
  15. GENERAL NUTRIENTS/MINERALS/VITAMINS [Concomitant]

REACTIONS (4)
  - ACTIVITIES OF DAILY LIVING IMPAIRED [None]
  - DIZZINESS [None]
  - FEELING ABNORMAL [None]
  - IMPAIRED DRIVING ABILITY [None]
